FAERS Safety Report 9932910 (Version 1)
Quarter: 2014Q1

REPORT INFORMATION
  Report Type: Spontaneous
  Country: US (occurrence: US)
  Receive Date: 20140228
  Receipt Date: 20140228
  Transmission Date: 20141002
  Serious: No
  Sender: FDA-Public Use
  Company Number: US-GLAXOSMITHKLINE-A1039151A

PATIENT
  Age: 26 Year
  Sex: Female

DRUGS (4)
  1. LAMICTAL [Suspect]
     Indication: PARTIAL SEIZURES
     Dosage: 550MG PER DAY
     Route: 048
     Dates: start: 2010
  2. YASMIN [Concomitant]
     Indication: CONTRACEPTION
  3. IRON SUPPLEMENTS [Concomitant]
  4. ZYRTEC [Concomitant]

REACTIONS (3)
  - Pain [Not Recovered/Not Resolved]
  - Abdominal pain [Unknown]
  - Diarrhoea [Unknown]
